FAERS Safety Report 16791751 (Version 2)
Quarter: 2019Q3

REPORT INFORMATION
  Report Type: Spontaneous
  Country: US (occurrence: US)
  Receive Date: 20190910
  Receipt Date: 20190916
  Transmission Date: 20191005
  Serious: Yes (Hospitalization)
  Sender: FDA-Public Use
  Company Number: US-AMERICAN REGENT INC-2019001973

PATIENT
  Age: 31 Year
  Sex: Female

DRUGS (2)
  1. INJECTAFER [Suspect]
     Active Substance: FERRIC CARBOXYMALTOSE
     Indication: HAEMATOCRIT DECREASED
  2. INJECTAFER [Suspect]
     Active Substance: FERRIC CARBOXYMALTOSE
     Indication: SERUM FERRITIN DECREASED
     Dosage: UNK UNK, SINGLE
     Route: 042
     Dates: start: 20190903, end: 20190903

REACTIONS (4)
  - Migraine [Unknown]
  - Blood potassium decreased [Unknown]
  - Serum sickness [Not Recovered/Not Resolved]
  - Product use in unapproved indication [Unknown]

NARRATIVE: CASE EVENT DATE: 20190905
